FAERS Safety Report 5012865-3 (Version None)
Quarter: 2006Q2

REPORT INFORMATION
  Report Type: 
  Country: None (occurrence: None)
  Receive Date: 20060530
  Receipt Date: 20060515
  Transmission Date: 20061013
  Serious: Yes (Other)
  Sender: FDA-Public Use
  Company Number: DEWYE620115MAY06

PATIENT
  Sex: Female
  Weight: 125 kg

DRUGS (15)
  1. ENBREL [Suspect]
     Indication: RHEUMATOID ARTHRITIS
     Route: 058
     Dates: start: 20050629, end: 20060504
  2. METHOTREXATE [Suspect]
     Indication: RHEUMATOID ARTHRITIS
     Route: 048
     Dates: start: 20050629, end: 20060504
  3. PREDNISOLONE [Concomitant]
     Route: 065
  4. DIPYRONE TAB [Concomitant]
     Route: 065
  5. THEOPHYLLINE [Concomitant]
     Route: 065
  6. DIBLOCIN [Concomitant]
     Route: 065
  7. CALCIUM GLUCONATE [Concomitant]
     Route: 065
  8. COLECALCIFEROL [Concomitant]
     Route: 065
  9. PANTOZOL [Concomitant]
     Route: 065
  10. TRIAMTERENE AND HYDROCHLOROTHIAZIDE [Concomitant]
     Route: 065
  11. VERAPAMIL [Concomitant]
     Route: 065
  12. MAGNESIUM SULFATE [Concomitant]
     Route: 065
  13. FOLIC ACID [Concomitant]
     Route: 065
  14. CANDESARTAN [Concomitant]
     Route: 065
  15. VITAMIN D [Concomitant]
     Route: 065

REACTIONS (1)
  - RENAL FAILURE [None]
